FAERS Safety Report 6719764-7 (Version None)
Quarter: 2010Q2

REPORT INFORMATION
  Report Type: 
  Country: None (occurrence: None)
  Receive Date: 20100511
  Receipt Date: 20100505
  Transmission Date: 20101027
  Serious: Yes (Death)
  Sender: FDA-Public Use
  Company Number: A0858406A

PATIENT
  Age: 99 Year
  Sex: Female

DRUGS (6)
  1. PAXIL [Suspect]
     Indication: DEPRESSION
     Route: 048
     Dates: start: 20100301
  2. ARICEPT [Concomitant]
  3. MORPHINE [Concomitant]
  4. FUROSEMIDE [Concomitant]
  5. POTASSIUM CHLORIDE [Concomitant]
  6. ATIVAN [Concomitant]

REACTIONS (4)
  - CONTUSION [None]
  - ECCHYMOSIS [None]
  - PURPURA SENILE [None]
  - SKIN FRAGILITY [None]
